FAERS Safety Report 13397276 (Version 1)
Quarter: 2017Q2

REPORT INFORMATION
  Report Type: Spontaneous
  Country: JP (occurrence: JP)
  Receive Date: 20170403
  Receipt Date: 20170403
  Transmission Date: 20170830
  Serious: Yes (Hospitalization, Other)
  Sender: FDA-Public Use
  Company Number: JP-BAYER-2017-056594

PATIENT
  Age: 85 Year
  Sex: Female

DRUGS (1)
  1. ACETYLSALICYLIC ACID({=100 MG) [Suspect]
     Active Substance: ASPIRIN
     Indication: ANGINA PECTORIS
     Dosage: UNK
     Route: 048

REACTIONS (4)
  - Haemoptysis [Recovering/Resolving]
  - Shock [Recovering/Resolving]
  - Bronchiectasis [Recovering/Resolving]
  - Acute respiratory failure [Recovering/Resolving]
